FAERS Safety Report 4334915-X (Version None)
Quarter: 2004Q2

REPORT INFORMATION
  Report Type: 
  Country: None (occurrence: None)
  Receive Date: 20040405
  Receipt Date: 20040324
  Transmission Date: 20050107
  Serious: Yes (Hospitalization)
  Sender: FDA-Public Use
  Company Number: 200313852GDS

PATIENT
  Age: 73 Year
  Sex: Male
  Weight: 74 kg

DRUGS (8)
  1. ASPIRIN [Suspect]
     Indication: MYOCARDIAL INFARCTION
     Dosage: 200 MG, TOTAL DAILY, ORAL; 200 MG, TOTAL DAILY, ORAL;  100 MG, TOTAL DAILY, ORAL
     Route: 048
     Dates: start: 20000701, end: 20030303
  2. ASPIRIN [Suspect]
     Indication: MYOCARDIAL INFARCTION
     Dosage: 200 MG, TOTAL DAILY, ORAL; 200 MG, TOTAL DAILY, ORAL;  100 MG, TOTAL DAILY, ORAL
     Route: 048
     Dates: start: 20030307, end: 20030317
  3. ASPIRIN [Suspect]
     Indication: MYOCARDIAL INFARCTION
     Dosage: 200 MG, TOTAL DAILY, ORAL; 200 MG, TOTAL DAILY, ORAL;  100 MG, TOTAL DAILY, ORAL
     Route: 048
     Dates: start: 20031010
  4. ITOROL [Concomitant]
  5. LANIRAPID [Concomitant]
  6. DILTIAZEM HCL [Concomitant]
  7. CIBENOL [Concomitant]
  8. RIZE [Concomitant]

REACTIONS (8)
  - BRONCHIOLITIS [None]
  - CAROTID ARTERY STENOSIS [None]
  - HAEMOPTYSIS [None]
  - HYPOAESTHESIA [None]
  - NUCLEAR MAGNETIC RESONANCE IMAGING BRAIN ABNORMAL [None]
  - SINUSITIS [None]
  - THROMBOSIS [None]
  - TRANSIENT ISCHAEMIC ATTACK [None]
